FAERS Safety Report 13835524 (Version 1)
Quarter: 2017Q3

REPORT INFORMATION
  Report Type: Spontaneous
  Country: US (occurrence: US)
  Receive Date: 20170804
  Receipt Date: 20170804
  Transmission Date: 20171127
  Serious: Yes (Hospitalization, Other)
  Sender: FDA-Public Use
  Company Number: None

PATIENT
  Age: 67 Year
  Sex: Male
  Weight: 111.5 kg

DRUGS (2)
  1. DEXTROSE. [Concomitant]
     Active Substance: DEXTROSE
  2. GLIMEPIRIDE. [Suspect]
     Active Substance: GLIMEPIRIDE
     Route: 048

REACTIONS (2)
  - Hypoglycaemia [None]
  - Overdose [None]

NARRATIVE: CASE EVENT DATE: 20170531
